FAERS Safety Report 19471514 (Version 1)
Quarter: 2021Q2

REPORT INFORMATION
  Report Type: Spontaneous
  Country: US (occurrence: US)
  Receive Date: 20210628
  Receipt Date: 20210628
  Transmission Date: 20210717
  Serious: No
  Sender: FDA-Public Use
  Company Number: None

PATIENT
  Age: 37 Year
  Sex: Female
  Weight: 90.9 kg

DRUGS (7)
  1. PROHLORPERAZINE [Concomitant]
  2. ZOLEDRONIC ACID. [Suspect]
     Active Substance: ZOLEDRONIC ACID
  3. CALCIUM AND VIT D [Suspect]
     Active Substance: CALCIUM\VITAMIN D
  4. XARELTO [Suspect]
     Active Substance: RIVAROXABAN
  5. EXEMESTANE 25MG TABLET [Suspect]
     Active Substance: EXEMESTANE
     Indication: BREAST CANCER METASTATIC
     Route: 048
     Dates: start: 20210116
  6. ONDANSETRON [Suspect]
     Active Substance: ONDANSETRON
  7. EVEROLIMUS 5MG TABLET [Suspect]
     Active Substance: EVEROLIMUS
     Indication: BREAST CANCER METASTATIC
     Route: 048
     Dates: start: 20210116

REACTIONS (1)
  - Disease progression [None]
